FAERS Safety Report 20849377 (Version 6)
Quarter: 2022Q3

REPORT INFORMATION
  Report Type: Report from Study
  Country: CO (occurrence: CO)
  Receive Date: 20220519
  Receipt Date: 20220906
  Transmission Date: 20221027
  Serious: Yes (Hospitalization, Other)
  Sender: FDA-Public Use
  Company Number: CO-BAYER-2022A069012

PATIENT
  Age: 45 Year
  Sex: Female

DRUGS (3)
  1. ADEMPAS [Suspect]
     Active Substance: RIOCIGUAT
     Indication: Pulmonary arterial hypertension
     Dosage: 2.5 MG, Q8HR
     Dates: start: 20220125, end: 20220627
  2. ADEMPAS [Suspect]
     Active Substance: RIOCIGUAT
     Indication: Pulmonary arterial hypertension
     Dosage: 2.5 MG, Q8HR
     Dates: start: 20220702
  3. SELEXIPAG [Suspect]
     Active Substance: SELEXIPAG
     Dosage: 2 TABLETS PER DAY
     Dates: start: 20220614, end: 20220711

REACTIONS (12)
  - Syncope [Unknown]
  - Chest pain [Recovering/Resolving]
  - Dyspnoea [Recovering/Resolving]
  - Heart rate increased [Not Recovered/Not Resolved]
  - Dizziness [Not Recovered/Not Resolved]
  - Fatigue [Not Recovered/Not Resolved]
  - Chest pain [Not Recovered/Not Resolved]
  - Migraine [None]
  - Depressed mood [None]
  - Tachycardia [Not Recovered/Not Resolved]
  - Drug dose titration not performed [None]
  - Discouragement [None]

NARRATIVE: CASE EVENT DATE: 20220101
